FAERS Safety Report 6931399-X (Version None)
Quarter: 2010Q3

REPORT INFORMATION
  Report Type: 
  Country: None (occurrence: None)
  Receive Date: 20100819
  Receipt Date: 20100810
  Transmission Date: 20110219
  Serious: Yes (Other)
  Sender: FDA-Public Use
  Company Number: FR-JNJFOC-20091103502

PATIENT
  Sex: Female
  Weight: 62 kg

DRUGS (18)
  1. GALANTAMINE HYDROBROMIDE [Suspect]
     Indication: DEMENTIA ALZHEIMER'S TYPE
     Route: 048
     Dates: end: 20091026
  2. GALANTAMINE HYDROBROMIDE [Suspect]
     Route: 048
     Dates: end: 20091026
  3. GALANTAMINE HYDROBROMIDE [Suspect]
     Route: 048
     Dates: end: 20091026
  4. PLACEBO [Suspect]
     Indication: DEMENTIA ALZHEIMER'S TYPE
     Route: 048
  5. PLACEBO [Suspect]
     Route: 048
  6. PLACEBO [Suspect]
     Route: 048
  7. CERAT DE GALIEN [Concomitant]
     Indication: DRY SKIN
     Route: 065
  8. AERIUS [Concomitant]
     Indication: DRY SKIN
     Route: 065
  9. ANTIBIOTIC [Concomitant]
     Indication: CYSTITIS
     Route: 065
  10. RILMENIDINE [Concomitant]
     Indication: HYPERTENSION
     Route: 065
  11. GLIMEPIRIDE [Concomitant]
     Indication: DIABETES MELLITUS
     Route: 065
     Dates: start: 20090216
  12. EXFORGE [Concomitant]
     Indication: HYPERTENSION
     Route: 065
  13. MEMANTINE HCL [Concomitant]
     Indication: DEMENTIA ALZHEIMER'S TYPE
     Route: 065
     Dates: start: 20090101
  14. ZOLPIDEM [Concomitant]
     Indication: SLEEP DISORDER
     Route: 065
  15. VERATRAN [Concomitant]
     Indication: SLEEP DISORDER
     Route: 065
  16. PANTOPRAZOLE SODIUM [Concomitant]
     Indication: GASTROOESOPHAGEAL REFLUX DISEASE
     Route: 065
     Dates: start: 20091008
  17. SODIUM ALGINATE [Concomitant]
     Indication: GASTROOESOPHAGEAL REFLUX DISEASE
     Route: 065
  18. DOMPERIDONE [Concomitant]
     Indication: GASTROOESOPHAGEAL REFLUX DISEASE
     Route: 065
     Dates: start: 20091008

REACTIONS (1)
  - RASH [None]
